FAERS Safety Report 9793959 (Version 2)
Quarter: 2014Q1

REPORT INFORMATION
  Report Type: Spontaneous
  Country: US (occurrence: US)
  Receive Date: 20140102
  Receipt Date: 20140102
  Transmission Date: 20141002
  Serious: No
  Sender: FDA-Public Use
  Company Number: US-AMGEN-USASP2013089329

PATIENT
  Age: 67 Year
  Sex: Female

DRUGS (1)
  1. ENBREL [Suspect]
     Indication: RHEUMATOID ARTHRITIS
     Dosage: 50 MG, QWK
     Route: 065
     Dates: start: 20130101

REACTIONS (5)
  - Neuroma [Recovered/Resolved]
  - Bunion [Not Recovered/Not Resolved]
  - Foot deformity [Recovered/Resolved]
  - Wound [Not Recovered/Not Resolved]
  - Feeling abnormal [Not Recovered/Not Resolved]
